FAERS Safety Report 10860973 (Version 1)
Quarter: 2015Q1

REPORT INFORMATION
  Report Type: Spontaneous
  Country: IT (occurrence: IT)
  Receive Date: 20150224
  Receipt Date: 20150224
  Transmission Date: 20150721
  Serious: Yes (Other)
  Sender: FDA-Public Use
  Company Number: IT-ROCHE-1540745

PATIENT
  Age: 57 Year
  Sex: Male

DRUGS (3)
  1. AVASTIN [Suspect]
     Active Substance: BEVACIZUMAB
     Indication: COLON CANCER
     Route: 042
     Dates: start: 20131015, end: 20150115
  2. FLUOROURACILE TEVA [Concomitant]
     Active Substance: FLUOROURACIL
     Route: 042
     Dates: start: 20131014, end: 20150217
  3. OXALIPLATINO [Concomitant]
     Active Substance: OXALIPLATIN
     Route: 042
     Dates: start: 20131014, end: 20150217

REACTIONS (2)
  - No therapeutic response [Unknown]
  - Disease progression [Not Recovered/Not Resolved]

NARRATIVE: CASE EVENT DATE: 20150115
